FAERS Safety Report 6604338-9 (Version None)
Quarter: 2010Q1

REPORT INFORMATION
  Report Type: 
  Country: None (occurrence: None)
  Receive Date: 20100226
  Receipt Date: 20090825
  Transmission Date: 20100710
  Serious: Yes (Other)
  Sender: FDA-Public Use
  Company Number: A0804091A

PATIENT
  Age: 29 Year
  Sex: Female

DRUGS (6)
  1. LAMICTAL CD [Suspect]
     Indication: BIPOLAR DISORDER
     Dosage: 100MG PER DAY
     Route: 048
     Dates: start: 20081215
  2. CLONAZEPAM [Concomitant]
  3. FLONASE [Concomitant]
  4. NORETHINDRONE AND ETHINYL ESTRADIOL [Concomitant]
  5. ZOMIG [Concomitant]
  6. ZYRTEC [Concomitant]

REACTIONS (1)
  - THROMBOCYTOPENIA [None]
